FAERS Safety Report 6135682-X (Version None)
Quarter: 2009Q1

REPORT INFORMATION
  Report Type: 
  Country: None (occurrence: None)
  Receive Date: 20090327
  Receipt Date: 20090317
  Transmission Date: 20090719
  Serious: Yes (Hospitalization)
  Sender: FDA-Public Use
  Company Number: TR-ELI_LILLY_AND_COMPANY-TR200903006493

PATIENT
  Age: 59 Year
  Sex: Female

DRUGS (4)
  1. HUMALOG MIX 75/25 [Suspect]
     Indication: DIABETES MELLITUS
     Dosage: 30 IU, EACH MORNING
     Route: 058
     Dates: start: 19990101
  2. HUMALOG MIX 75/25 [Suspect]
     Dosage: 50 IU, EACH EVENING
     Route: 058
     Dates: start: 19990101
  3. ATACAND HCT [Concomitant]
     Indication: HYPERTENSION
  4. DILATREND [Concomitant]
     Indication: CARDIAC DISORDER

REACTIONS (5)
  - BURNING SENSATION [None]
  - FOOT AMPUTATION [None]
  - HYPOAESTHESIA [None]
  - INTERVERTEBRAL DISC PROTRUSION [None]
  - PAIN IN EXTREMITY [None]
